FAERS Safety Report 8320053 (Version 5)
Quarter: 2013Q3

REPORT INFORMATION
  Report Type: Report from Study
  Country: US (occurrence: US)
  Receive Date: 20120103
  Receipt Date: 20130927
  Transmission Date: 20140515
  Serious: Yes (Hospitalization)
  Sender: FDA-Public Use
  Company Number: US-ELI_LILLY_AND_COMPANY-US201112000678

PATIENT
  Age: 77 Year
  Sex: Female
  Weight: 27.9 kg

DRUGS (7)
  1. TERIPARATIDE [Suspect]
     Indication: OSTEOPOROSIS
     Dosage: 20 UG, QD
     Route: 058
     Dates: start: 20111027
  2. TERIPARATIDE [Suspect]
     Dosage: 20 UG, QD
     Route: 058
  3. TERIPARATIDE [Suspect]
     Dosage: 20 UG, QD
     Route: 058
  4. TERIPARATIDE [Suspect]
     Dosage: 20 UG, QD
  5. TERIPARATIDE [Suspect]
     Dosage: 20 UG, QD
  6. TERIPARATIDE [Suspect]
     Dosage: UNK, QD
     Dates: start: 201111
  7. PANTOPRAZOLE [Concomitant]

REACTIONS (12)
  - Oesophageal ulcer [Unknown]
  - Injection site haemorrhage [Recovered/Resolved]
  - Injection site bruising [Recovered/Resolved]
  - Oesophagitis [Unknown]
  - Headache [Unknown]
  - Sinus disorder [Unknown]
  - Injection site pain [Unknown]
  - Erythema [Unknown]
  - Injection site bruising [Not Recovered/Not Resolved]
  - Hyperhidrosis [Unknown]
  - Fall [Unknown]
  - Balance disorder [Unknown]
